FAERS Safety Report 13910978 (Version 1)
Quarter: 2017Q3

REPORT INFORMATION
  Report Type: Spontaneous
  Country: ES (occurrence: ES)
  Receive Date: 20170828
  Receipt Date: 20170828
  Transmission Date: 20171127
  Serious: Yes (Hospitalization)
  Sender: FDA-Public Use
  Company Number: ES-TEVA-798730ISR

PATIENT
  Age: 77 Year
  Sex: Male

DRUGS (2)
  1. ETOPOSIDO TEVAGEN 20MG/ML CONCENTRADO PARA SOLUCION PARA PERFUSION, A [Suspect]
     Active Substance: ETOPOSIDE
     Indication: NEUROENDOCRINE TUMOUR OF THE LUNG
     Dosage: 289MG IV PERFUSION EVERY 21 DAYS
     Route: 042
     Dates: start: 20170329, end: 20170329
  2. CARBOPLATINO ACCORD 10MG/ML CONCENTRADO PARA SOLUCION PARA PERFUSION E [Concomitant]
     Indication: NEUROENDOCRINE CARCINOMA
     Dosage: 481MG IV PERFUSION EVERY 21 DAYS
     Route: 042
     Dates: start: 20170329, end: 20170329

REACTIONS (2)
  - Loss of consciousness [Recovered/Resolved]
  - Syncope [Recovered/Resolved]

NARRATIVE: CASE EVENT DATE: 20170329
